FAERS Safety Report 4928154-9 (Version None)
Quarter: 2006Q1

REPORT INFORMATION
  Report Type: 
  Country: None (occurrence: None)
  Receive Date: 20060223
  Receipt Date: 20060202
  Transmission Date: 20060701
  Serious: Yes (Hospitalization)
  Sender: FDA-Public Use
  Company Number: FR200602000645

PATIENT
  Age: 85 Year
  Sex: Female
  Weight: 66.5 kg

DRUGS (2)
  1. FORTEO [Suspect]
     Dosage: SUBCUTANEOUS
     Route: 058
     Dates: start: 20050110
  2. FORTEO [Concomitant]

REACTIONS (1)
  - LUMBAR VERTEBRAL FRACTURE [None]
